FAERS Safety Report 9884935 (Version 2)
Quarter: 2014Q1

REPORT INFORMATION
  Report Type: Spontaneous
  Country: DE (occurrence: DE)
  Receive Date: 20140210
  Receipt Date: 20140220
  Transmission Date: 20141002
  Serious: Yes (Hospitalization)
  Sender: FDA-Public Use
  Company Number: DE-JNJFOC-20140203233

PATIENT
  Age: 79 Year
  Sex: Male

DRUGS (1)
  1. XARELTO [Suspect]
     Indication: PRODUCT USED FOR UNKNOWN INDICATION
     Route: 048
     Dates: start: 20130713

REACTIONS (8)
  - Prothrombin time prolonged [Recovering/Resolving]
  - Dyspnoea [Unknown]
  - Oedema [Unknown]
  - General physical health deterioration [Unknown]
  - Iron deficiency anaemia [Unknown]
  - Haemoglobin decreased [Unknown]
  - International normalised ratio abnormal [Unknown]
  - Overdose [Unknown]
